FAERS Safety Report 5685637-4 (Version None)
Quarter: 2008Q1

REPORT INFORMATION
  Report Type: 
  Country: None (occurrence: None)
  Receive Date: 20080328
  Receipt Date: 20070829
  Transmission Date: 20080703
  Serious: No
  Sender: FDA-Public Use
  Company Number: US-BAYER-US-2007-032551

PATIENT
  Age: 40 Year
  Sex: Female
  Weight: 63 kg

DRUGS (5)
  1. MIRENA [Suspect]
     Indication: CONTRACEPTION
     Route: 015
     Dates: start: 20061201
  2. MAVIK [Concomitant]
  3. ZOLOFT [Concomitant]
  4. ACTOS [Concomitant]
  5. ACIPHEX [Concomitant]

REACTIONS (3)
  - FUNGAL INFECTION [None]
  - PROCEDURAL DIZZINESS [None]
  - PROCEDURAL PAIN [None]
